FAERS Safety Report 21723801 (Version 2)
Quarter: 2024Q1

REPORT INFORMATION
  Report Type: Spontaneous
  Country: CN (occurrence: CN)
  Receive Date: 20221213
  Receipt Date: 20240311
  Transmission Date: 20240410
  Serious: Yes (Other)
  Sender: FDA-Public Use
  Company Number: CN-ABBVIE-4232746

PATIENT
  Age: 82 Year
  Sex: Male
  Weight: 56 kg

DRUGS (2)
  1. VENCLEXTA [Suspect]
     Active Substance: VENETOCLAX
     Indication: Acute myeloid leukaemia
     Dosage: 100 MILLIGRAM
     Route: 048
     Dates: start: 20221101, end: 20221101
  2. VENCLEXTA [Suspect]
     Active Substance: VENETOCLAX
     Indication: Acute myeloid leukaemia
     Dosage: 200 MILLIGRAM
     Route: 048
     Dates: start: 20221102, end: 20221109

REACTIONS (7)
  - Myelosuppression [Recovering/Resolving]
  - Pyrexia [Unknown]
  - Thrombocytopenia [Recovering/Resolving]
  - Anti-thyroid antibody increased [Recovering/Resolving]
  - Agranulocytosis [Recovering/Resolving]
  - Interleukin level increased [Recovering/Resolving]
  - Granulocyte-colony stimulating factor level increased [Recovering/Resolving]

NARRATIVE: CASE EVENT DATE: 20221109
